FAERS Safety Report 25202087 (Version 1)
Quarter: 2025Q2

REPORT INFORMATION
  Report Type: Report from Study
  Country: US (occurrence: US)
  Receive Date: 20250416
  Receipt Date: 20250416
  Transmission Date: 20250716
  Serious: Yes (Other)
  Sender: JAZZ
  Company Number: US-JAZZ PHARMACEUTICALS-2023-US-025490

PATIENT
  Age: 43 Year
  Sex: Female

DRUGS (22)
  1. SODIUM OXYBATE [Suspect]
     Active Substance: SODIUM OXYBATE
     Indication: Narcolepsy
  2. SODIUM OXYBATE [Suspect]
     Active Substance: SODIUM OXYBATE
     Indication: Cataplexy
  3. SODIUM OXYBATE [Suspect]
     Active Substance: SODIUM OXYBATE
     Indication: Somnolence
  4. GABAPENTIN [Concomitant]
     Active Substance: GABAPENTIN
     Dates: start: 20150601
  5. GABAPENTIN [Concomitant]
     Active Substance: GABAPENTIN
  6. ATENOLOL [Concomitant]
     Active Substance: ATENOLOL
     Dosage: UNK, QD
     Dates: start: 20150601
  7. VITAMIN D3 [Concomitant]
     Active Substance: CHOLECALCIFEROL
     Dosage: UNK, QD
     Dates: start: 20150601
  8. PROAIR HFA [Concomitant]
     Active Substance: ALBUTEROL SULFATE
     Dates: start: 20150611
  9. TUMS [Concomitant]
     Active Substance: CALCIUM CARBONATE
     Dates: start: 19931201
  10. ESTRADIOL [Concomitant]
     Active Substance: ESTRADIOL
     Dates: start: 20100101
  11. ARMOUR THYROID [Concomitant]
     Active Substance: THYROID, PORCINE
     Dates: start: 20080101
  12. RIZATRIPTAN [Concomitant]
     Active Substance: RIZATRIPTAN
     Dates: start: 20070101
  13. PROBIOTICS NOS [Concomitant]
     Active Substance: PROBIOTICS NOS
     Dates: start: 20150101
  14. ZOFRAN [Concomitant]
     Active Substance: ONDANSETRON HYDROCHLORIDE
     Dates: start: 20150101
  15. VITAMIN B COMPLEX NOS [Concomitant]
     Active Substance: CYANOCOBALAMIN\PYRIDOXINE HYDROCHLORIDE\RIBOFLAVIN\SODIUM PANTOTHENATE\THIAMINE HYDROCHLORIDE\VITAMI
     Dates: start: 20231226
  16. HYDROXYZINE PAMOATE [Concomitant]
     Active Substance: HYDROXYZINE PAMOATE
     Dates: start: 20240911
  17. TYLENOL ARTHRITIS PAIN [Concomitant]
     Active Substance: ACETAMINOPHEN
     Dates: start: 20240911
  18. CETIRIZINE HCL [Concomitant]
     Active Substance: CETIRIZINE HYDROCHLORIDE
     Dates: start: 20240911
  19. VITAMIN B12 [Concomitant]
     Active Substance: CYANOCOBALAMIN
     Dates: start: 20240911
  20. IBUPROFEN [Concomitant]
     Active Substance: IBUPROFEN
     Dates: start: 20240911
  21. ONDANSETRON HYDROCHLORIDE [Concomitant]
     Active Substance: ONDANSETRON HYDROCHLORIDE
     Dates: start: 20240911
  22. OXYCODONE HYDROCHLORIDE [Concomitant]
     Active Substance: OXYCODONE HYDROCHLORIDE
     Dates: start: 20240911

REACTIONS (4)
  - Nephrolithiasis [Unknown]
  - Limb injury [Unknown]
  - Nerve compression [Unknown]
  - Cubital tunnel syndrome [Unknown]

NARRATIVE: CASE EVENT DATE: 20230901
